FAERS Safety Report 14715885 (Version 1)
Quarter: 2018Q2

REPORT INFORMATION
  Report Type: Spontaneous
  Country: DE (occurrence: DE)
  Receive Date: 20180404
  Receipt Date: 20180404
  Transmission Date: 20180711
  Serious: Yes (Life-Threatening, Hospitalization)
  Sender: FDA-Public Use
  Company Number: DE-MYLANLABS-2018M1020490

PATIENT
  Sex: Female
  Weight: 57 kg

DRUGS (3)
  1. RITUXIMAB. [Suspect]
     Active Substance: RITUXIMAB
     Indication: IMMUNOSUPPRESSION
     Dosage: 4 UNK, 4 TIMES DAILY
     Route: 042
     Dates: start: 20110101
  2. TACROLIMUS. [Suspect]
     Active Substance: TACROLIMUS
     Indication: IMMUNOSUPPRESSION
     Dosage: 6 MG, QD, DAILY DOSE: 6 MG MILLIGRAM(S) EVERY DAY
     Route: 048
     Dates: start: 20140325, end: 20140923
  3. TACROLIMUS. [Suspect]
     Active Substance: TACROLIMUS
     Dosage: 1 MG, QD, DAILY DOSE: 1 MG MILLIGRAM(S) EVERY DAY
     Route: 048
     Dates: start: 20140924, end: 20141010

REACTIONS (2)
  - Meningitis viral [Recovered/Resolved with Sequelae]
  - JC virus infection [Recovered/Resolved with Sequelae]

NARRATIVE: CASE EVENT DATE: 20140921
